FAERS Safety Report 9949132 (Version 2)
Quarter: 2014Q2

REPORT INFORMATION
  Report Type: Spontaneous
  Country: US (occurrence: US)
  Receive Date: 20140304
  Receipt Date: 20140409
  Transmission Date: 20141212
  Serious: No
  Sender: FDA-Public Use
  Company Number: US-009507513-1403USA000373

PATIENT
  Age: 70 Year
  Sex: Female
  Weight: 74.83 kg

DRUGS (9)
  1. ASMANEX TWISTHALER [Suspect]
     Indication: ALLERGIC RESPIRATORY DISEASE
     Dosage: 1 DF, QD; ROUTE: ORAL
     Route: 055
     Dates: start: 201402, end: 201403
  2. ASMANEX TWISTHALER [Suspect]
     Indication: ASTHMA
  3. ASMANEX TWISTHALER [Suspect]
     Indication: ALLERGIC COUGH
  4. ASMANEX TWISTHALER [Suspect]
     Indication: ANGIOEDEMA
  5. FLONASE [Concomitant]
  6. HYDROCHLORTHIAZID [Concomitant]
  7. POTASSIUM (UNSPECIFIED) [Concomitant]
  8. CLARITIN [Concomitant]
     Route: 048
  9. PRINIVIL [Concomitant]
     Dosage: UNK
     Route: 048

REACTIONS (1)
  - Rash [Recovered/Resolved]
